FAERS Safety Report 19413304 (Version 1)
Quarter: 2021Q2

REPORT INFORMATION
  Report Type: Spontaneous
  Country: CA (occurrence: CA)
  Receive Date: 20210614
  Receipt Date: 20210614
  Transmission Date: 20210717
  Serious: Yes (Other)
  Sender: FDA-Public Use
  Company Number: CA-ACCORD-227864

PATIENT
  Age: 55 Year
  Sex: Female
  Weight: 58 kg

DRUGS (7)
  1. FASLODEX [Suspect]
     Active Substance: FULVESTRANT
     Indication: BREAST CANCER
     Dosage: SOLUTION INTRAMUSCULAR
  2. CYCLOPHOSPHAMIDE. [Suspect]
     Active Substance: CYCLOPHOSPHAMIDE
     Indication: NEOADJUVANT THERAPY
  3. CAPECITABINE. [Suspect]
     Active Substance: CAPECITABINE
     Indication: BREAST CANCER
  4. LETROZOLE. [Suspect]
     Active Substance: LETROZOLE
     Indication: BREAST CANCER
  5. PACLITAXEL/PACLITAXEL LIPOSOME [Suspect]
     Active Substance: PACLITAXEL
     Indication: NEOADJUVANT THERAPY
     Dosage: LIQUID INTRAVENOUS
  6. IBRANCE [Suspect]
     Active Substance: PALBOCICLIB
     Indication: BREAST CANCER
     Dosage: 1 EVERY 1 DAYS
     Route: 048
  7. DOXORUBICIN [Suspect]
     Active Substance: DOXORUBICIN
     Indication: NEOADJUVANT THERAPY

REACTIONS (3)
  - Breast cancer [Unknown]
  - Disease recurrence [Unknown]
  - Malignant neoplasm progression [Unknown]
